FAERS Safety Report 20783109 (Version 1)
Quarter: 2022Q2

REPORT INFORMATION
  Report Type: Spontaneous
  Country: US (occurrence: US)
  Receive Date: 20220504
  Receipt Date: 20220504
  Transmission Date: 20220721
  Serious: No
  Sender: FDA-Public Use
  Company Number: US-ORGANON-O2204USA001984

PATIENT
  Age: 61 Year
  Sex: Male

DRUGS (2)
  1. PREGNYL [Suspect]
     Active Substance: CHORIOGONADOTROPIN ALFA
     Indication: Hormone therapy
     Dosage: 25 MILLILITER
     Route: 058
     Dates: start: 2021
  2. WATER FOR INJECTION [Suspect]
     Active Substance: WATER
     Dosage: UNK

REACTIONS (4)
  - Illness [Recovering/Resolving]
  - Vomiting [Recovering/Resolving]
  - Liquid product physical issue [Unknown]
  - Poor quality product administered [Unknown]

NARRATIVE: CASE EVENT DATE: 20220418
